FAERS Safety Report 5152102-2 (Version None)
Quarter: 2006Q4

REPORT INFORMATION
  Report Type: 
  Country: None (occurrence: None)
  Receive Date: 20061113
  Receipt Date: 20061113
  Transmission Date: 20070319
  Serious: No
  Sender: FDA-Public Use
  Company Number: None

PATIENT

DRUGS (1)
  1. FLOVENT HFA [Suspect]
     Indication: BRONCHOSTENOSIS
     Dosage: 8 PUFFS Q4 HOURS PRN INHAL
     Route: 055

REACTIONS (3)
  - DEVICE BREAKAGE [None]
  - INCORRECT DOSE ADMINISTERED [None]
  - PHARMACEUTICAL PRODUCT COMPLAINT [None]
